FAERS Safety Report 7477964-5 (Version None)
Quarter: 2011Q2

REPORT INFORMATION
  Report Type: 
  Country: None (occurrence: None)
  Receive Date: 20110513
  Receipt Date: 20110503
  Transmission Date: 20111010
  Serious: Yes (Life-Threatening, Other)
  Sender: FDA-Public Use
  Company Number: US-BAYER-2011-038021

PATIENT
  Sex: Female

DRUGS (3)
  1. CONTRACEPTIVES NOS [Concomitant]
     Indication: CONTRACEPTION
  2. ADVAIR DISKUS 100/50 [Concomitant]
  3. AVELOX [Suspect]
     Indication: SINUSITIS
     Dosage: 400 MG, ONCE
     Route: 048

REACTIONS (1)
  - ANAPHYLACTIC SHOCK [None]
